FAERS Safety Report 8315968 (Version 2)
Quarter: 2012Q4

REPORT INFORMATION
  Report Type: 
  Country: FR (occurrence: FR)
  Receive Date: 20111229
  Receipt Date: 20121022
  Transmission Date: 20130627
  Serious: Yes (Other)
  Sender: FDA-Public Use
  Company Number: PHHY2011FR111924

PATIENT
  Age: 55 Year
  Sex: Male

DRUGS (3)
  1. 5-FLUOROURACIL [Suspect]
     Indication: HEAD AND NECK CANCER
     Dosage: 6150 mg, UNK
  2. DOCETAXEL [Concomitant]
     Indication: HEAD AND NECK CANCER
     Dosage: UNK
  3. CISPLATIN [Concomitant]
     Indication: HEAD AND NECK CANCER
     Dosage: UNK

REACTIONS (5)
  - Neurotoxicity [Recovered/Resolved]
  - Convulsion [Recovered/Resolved]
  - Loss of consciousness [Recovered/Resolved]
  - Neutropenia [Recovered/Resolved]
  - Sepsis [Recovered/Resolved]
